FAERS Safety Report 10187085 (Version 1)
Quarter: 2014Q2

REPORT INFORMATION
  Report Type: Spontaneous
  Country: GB (occurrence: GB)
  Receive Date: 20140522
  Receipt Date: 20140522
  Transmission Date: 20141212
  Serious: Yes (Other)
  Sender: FDA-Public Use
  Company Number: GB-BRISTOL-MYERS SQUIBB COMPANY-20788006

PATIENT
  Age: 81 Year
  Sex: Male

DRUGS (4)
  1. ABILIFY TABS 5 MG [Suspect]
     Indication: DEMENTIA ALZHEIMER^S TYPE
     Dosage: UNK DATE TO UNK DATE -10MG/DAY?UNK DATE TO UNK DATE -5MG/DAY?THEN INCREASE TO 10MG/DAY(UNK.DATE)
     Route: 048
  2. ABILIFY TABS 5 MG [Suspect]
     Indication: DEMENTIA
     Dosage: UNK DATE TO UNK DATE -10MG/DAY?UNK DATE TO UNK DATE -5MG/DAY?THEN INCREASE TO 10MG/DAY(UNK.DATE)
     Route: 048
  3. VENLAFAXINE HCL [Concomitant]
     Indication: DEPRESSION
     Dosage: XL: INCREASED TO 150MG/DAY(FROM UNK DATE)
  4. MEMANTINE HCL [Concomitant]

REACTIONS (3)
  - Psychotic disorder [Recovered/Resolved]
  - Aggression [Recovered/Resolved]
  - Off label use [Unknown]
